FAERS Safety Report 21556512 (Version 1)
Quarter: 2022Q4

REPORT INFORMATION
  Report Type: Spontaneous
  Country: US (occurrence: US)
  Receive Date: 20221104
  Receipt Date: 20221104
  Transmission Date: 20230112
  Serious: No
  Sender: FDA-Public Use
  Company Number: US-ANIPHARMA-2022-US-022271

PATIENT
  Age: 48 Year
  Sex: Female

DRUGS (1)
  1. CORTICOTROPIN [Suspect]
     Active Substance: CORTICOTROPIN
     Indication: Nephrotic syndrome
     Dosage: 80 UNITS TWICE A WEEK INTRAMUSCULARLY
     Route: 030
     Dates: start: 20220610

REACTIONS (3)
  - Gastrooesophageal reflux disease [Unknown]
  - Taste disorder [Unknown]
  - Thirst [Unknown]
